FAERS Safety Report 8317881-1 (Version None)
Quarter: 2012Q2

REPORT INFORMATION
  Report Type: 
  Country: None (occurrence: None)
  Receive Date: 20120427
  Receipt Date: 20110318
  Transmission Date: 20120825
  Serious: No
  Sender: FDA-Public Use
  Company Number: US-MYLANLABS-2011S1005978

PATIENT
  Age: 40 Year
  Sex: Female

DRUGS (3)
  1. METHIMAZOLE [Suspect]
     Route: 048
     Dates: start: 20110317
  2. BYSTOLIC [Concomitant]
  3. METHIMAZOLE [Suspect]
     Indication: BASEDOW'S DISEASE
     Route: 048
     Dates: start: 20110211, end: 20110316

REACTIONS (1)
  - AGEUSIA [None]
